FAERS Safety Report 11779410 (Version 3)
Quarter: 2016Q4

REPORT INFORMATION
  Report Type: Spontaneous
  Country: DK (occurrence: DK)
  Receive Date: 20151125
  Receipt Date: 20161027
  Transmission Date: 20170206
  Serious: Yes (Hospitalization)
  Sender: FDA-Public Use
  Company Number: DK-PFIZER INC-2015402193

PATIENT
  Age: 69 Year
  Sex: Male

DRUGS (6)
  1. METHOTREXATE. [Concomitant]
     Active Substance: METHOTREXATE
     Indication: RHEUMATOID ARTHRITIS
     Dosage: 10 MG, WEEKLY (STRENGTH 2.5 MG)
     Route: 048
     Dates: start: 20131217
  2. PREDNISOLON [Concomitant]
     Active Substance: PREDNISOLONE
     Indication: RHEUMATOID ARTHRITIS
     Dosage: 20 MG DAILY FOR A WEEK
     Route: 048
     Dates: start: 20131217
  3. PREDNISOLON [Concomitant]
     Active Substance: PREDNISOLONE
     Dosage: 5 MG DAILY, WAS TO BE DISCONTINUED GRADUALLY. DID NOT TAKE PREDNISOLON ON 02JUL2014
     Route: 048
     Dates: start: 20140111
  4. SULFASALAZIN MEDAC [Suspect]
     Active Substance: SULFASALAZINE
     Indication: RHEUMATOID ARTHRITIS
     Dosage: INCREASED TO 1500 MG TWICE DAILY
     Route: 048
     Dates: start: 20130904, end: 20131021
  5. DEPO-MEDROL [Suspect]
     Active Substance: METHYLPREDNISOLONE ACETATE
     Indication: RHEUMATOID ARTHRITIS
     Dosage: 80 MG, SINGLE
     Route: 030
     Dates: start: 20130904, end: 20130904
  6. METHOTREXATE. [Concomitant]
     Active Substance: METHOTREXATE
     Dosage: 15 MG, WEEKLY
     Route: 048
     Dates: start: 20140111

REACTIONS (16)
  - Pruritus generalised [Unknown]
  - Ear pain [Recovered/Resolved]
  - Pneumonia [Unknown]
  - Thrombosis [Recovered/Resolved with Sequelae]
  - Hypoaesthesia [Unknown]
  - Rash [Not Recovered/Not Resolved]
  - Oropharyngeal pain [Unknown]
  - Polymyalgia rheumatica [Unknown]
  - Connective tissue disorder [Not Recovered/Not Resolved]
  - Toxicity to various agents [Recovered/Resolved with Sequelae]
  - Balance disorder [Not Recovered/Not Resolved]
  - Leukopenia [Recovered/Resolved]
  - Musculoskeletal pain [Unknown]
  - Dizziness [Not Recovered/Not Resolved]
  - Polyneuropathy [Not Recovered/Not Resolved]
  - Memory impairment [Not Recovered/Not Resolved]

NARRATIVE: CASE EVENT DATE: 201310
